FAERS Safety Report 5713644-1 (Version None)
Quarter: 2008Q2

REPORT INFORMATION
  Report Type: 
  Country: None (occurrence: None)
  Receive Date: 20080422
  Receipt Date: 20080414
  Transmission Date: 20081010
  Serious: Yes (Death, Other)
  Sender: FDA-Public Use
  Company Number: US-MERCK-0804USA01323

PATIENT
  Age: 76 Year
  Sex: Male

DRUGS (5)
  1. SINGULAIR [Suspect]
     Indication: ASTHMA
     Route: 048
  2. [THERAPY UNSPECIFIED] [Concomitant]
     Indication: BLOOD PRESSURE
     Route: 065
  3. ADVAIR HFA [Concomitant]
     Indication: ASTHMA
     Route: 065
  4. LUNESTA [Concomitant]
     Indication: SLEEP DISORDER
     Route: 065
  5. PREDNISONE [Concomitant]
     Route: 065

REACTIONS (2)
  - COMPLETED SUICIDE [None]
  - SUICIDE ATTEMPT [None]
